FAERS Safety Report 5882854-5 (Version None)
Quarter: 2008Q3

REPORT INFORMATION
  Report Type: 
  Country: None (occurrence: None)
  Receive Date: 20080913
  Receipt Date: 20080818
  Transmission Date: 20090109
  Serious: No
  Sender: FDA-Public Use
  Company Number: US-ABBOTT-08P-163-0471552-00

PATIENT
  Sex: Female
  Weight: 86.714 kg

DRUGS (3)
  1. HUMIRA [Suspect]
     Indication: CROHN'S DISEASE
     Route: 058
     Dates: start: 20080801, end: 20080801
  2. HUMIRA [Suspect]
     Route: 058
     Dates: start: 20080815, end: 20080815
  3. HUMIRA [Suspect]
     Route: 058

REACTIONS (5)
  - HYPERSENSITIVITY [None]
  - INJECTION SITE ERYTHEMA [None]
  - INJECTION SITE NODULE [None]
  - INJECTION SITE RASH [None]
  - INJECTION SITE SWELLING [None]
